FAERS Safety Report 4712328-6 (Version None)
Quarter: 2005Q3

REPORT INFORMATION
  Report Type: 
  Country: None (occurrence: None)
  Receive Date: 20050711
  Receipt Date: 20050627
  Transmission Date: 20060218
  Serious: Yes (Hospitalization, Other)
  Sender: FDA-Public Use
  Company Number: 2005BI004281

PATIENT
  Age: 54 Year
  Sex: Female

DRUGS (2)
  1. AVONEX [Suspect]
     Indication: MULTIPLE SCLEROSIS
     Dosage: 30 UG QW; IM
     Route: 030
     Dates: start: 20020410, end: 20030813
  2. AVONEX [Suspect]
     Indication: MULTIPLE SCLEROSIS
     Dosage: 30 UG QW; IM
     Route: 030
     Dates: start: 20041101, end: 20050219

REACTIONS (5)
  - CARDIOMYOPATHY [None]
  - CHEST DISCOMFORT [None]
  - HEART RATE INCREASED [None]
  - JOINT SWELLING [None]
  - MYOCARDIAL INFARCTION [None]
